FAERS Safety Report 10248026 (Version 1)
Quarter: 2014Q2

REPORT INFORMATION
  Report Type: Spontaneous
  Country: CA (occurrence: CA)
  Receive Date: 20140619
  Receipt Date: 20140619
  Transmission Date: 20141212
  Serious: Yes (Other)
  Sender: FDA-Public Use
  Company Number: CA-TEVA-489265USA

PATIENT
  Age: 72 Year
  Sex: Female
  Weight: 70 kg

DRUGS (15)
  1. AZITHROMYCIN [Suspect]
     Indication: ATYPICAL MYCOBACTERIAL INFECTION
     Dosage: 250MG
     Route: 065
  2. ETHAMBUTOL [Suspect]
     Indication: ATYPICAL MYCOBACTERIAL INFECTION
     Dosage: 1600MG DAILY FOR 2 MONTHS, FOLLOWED BY 1300MG DAILY
     Route: 065
  3. ETHAMBUTOL [Suspect]
     Indication: ATYPICAL MYCOBACTERIAL INFECTION
     Dosage: 1300MG DAILY
     Route: 065
  4. ISONIAZID [Suspect]
     Indication: ATYPICAL MYCOBACTERIAL INFECTION
     Dosage: 300MG
     Route: 065
  5. RIFAMPICIN [Concomitant]
     Indication: ATYPICAL MYCOBACTERIAL INFECTION
     Dosage: 600MG
     Route: 065
  6. PYRIDOXINE [Concomitant]
     Indication: ATYPICAL MYCOBACTERIAL INFECTION
     Dosage: 25MG
     Route: 065
  7. ASPIRIN [Concomitant]
     Route: 065
  8. AMLODIPINE [Concomitant]
     Route: 065
  9. ATORVASTATIN [Concomitant]
     Route: 065
  10. RAMIPRIL [Concomitant]
     Route: 065
  11. METOPROLOL [Concomitant]
     Route: 065
  12. HYDROCHLOROTHIAZIDE [Concomitant]
     Route: 065
  13. TIOTROPIUM BROMIDE [Concomitant]
     Route: 055
  14. BUDESONIDE, FORMOTEROL [Concomitant]
     Route: 055
  15. SALBUTAMOL [Concomitant]
     Route: 055

REACTIONS (1)
  - Hemianopia heteronymous [Recovering/Resolving]
